FAERS Safety Report 5196958-6 (Version None)
Quarter: 2006Q4

REPORT INFORMATION
  Report Type: 
  Country: None (occurrence: None)
  Receive Date: 20061227
  Receipt Date: 20061214
  Transmission Date: 20070319
  Serious: Yes (Hospitalization)
  Sender: FDA-Public Use
  Company Number: 2006154010

PATIENT
  Age: 37 Year
  Sex: Male

DRUGS (4)
  1. ATARAX [Suspect]
     Dosage: ORAL
     Route: 048
     Dates: start: 20061122, end: 20061127
  2. FAMOTIDINE [Concomitant]
  3. DOMPERIDONE (DOMPERIDONE) [Concomitant]
  4. MUCOSTA (REBAMIPIDE) [Concomitant]

REACTIONS (1)
  - JAUNDICE [None]
